FAERS Safety Report 7288347-5 (Version None)
Quarter: 2011Q1

REPORT INFORMATION
  Report Type: 
  Country: None (occurrence: None)
  Receive Date: 20110211
  Receipt Date: 20110207
  Transmission Date: 20110831
  Serious: Yes (Other)
  Sender: FDA-Public Use
  Company Number: FR-PFIZER INC-2011026684

PATIENT
  Age: 62 Year
  Sex: Female

DRUGS (3)
  1. PREVISCAN [Concomitant]
     Dosage: UNK
  2. REVATIO [Suspect]
     Indication: PULMONARY ARTERIAL HYPERTENSION
     Dosage: 20 MG, 3X/DAY
     Route: 048
     Dates: start: 20090701
  3. ZESTORETIC [Concomitant]
     Dosage: UNK

REACTIONS (7)
  - VISUAL IMPAIRMENT [None]
  - VISUAL ACUITY REDUCED [None]
  - PHOTOPHOBIA [None]
  - PAIN [None]
  - ERYTHEMA [None]
  - VISION BLURRED [None]
  - CATARACT [None]
